FAERS Safety Report 6420577-4 (Version None)
Quarter: 2009Q4

REPORT INFORMATION
  Report Type: 
  Country: None (occurrence: None)
  Receive Date: 20091027
  Receipt Date: 20091012
  Transmission Date: 20100525
  Serious: Yes (Other)
  Sender: FDA-Public Use
  Company Number: 2009AP004147

PATIENT
  Age: 20 Year
  Sex: Male

DRUGS (4)
  1. OXCARBAZEPINE [Suspect]
     Dosage: 2 TAB;BID;PO
     Route: 048
     Dates: start: 20080520
  2. RISPERIDONE [Suspect]
     Indication: ABNORMAL BEHAVIOUR
     Dosage: 0.5 MG;BID;PO
     Route: 048
  3. TOPAMAX [Suspect]
     Dosage: PO
     Route: 048
  4. RISPERIDONE [Concomitant]

REACTIONS (3)
  - ANAEMIA [None]
  - GASTROINTESTINAL INFLAMMATION [None]
  - HAEMATOCHEZIA [None]
